FAERS Safety Report 23826207 (Version 1)
Quarter: 2024Q2

REPORT INFORMATION
  Report Type: Spontaneous
  Country: CN (occurrence: CN)
  Receive Date: 20240507
  Receipt Date: 20240507
  Transmission Date: 20240715
  Serious: Yes (Life-Threatening, Hospitalization, Other)
  Sender: FDA-Public Use
  Company Number: CN-BAYER-2024A067163

PATIENT
  Age: 54 Year
  Sex: Male
  Weight: 76 kg

DRUGS (2)
  1. ULTRAVIST [Suspect]
     Active Substance: IOPROMIDE
     Indication: Computerised tomogram heart
     Dosage: 1 DF, ONCE
     Route: 042
     Dates: start: 20240506, end: 20240506
  2. ULTRAVIST [Suspect]
     Active Substance: IOPROMIDE
     Indication: Arteriosclerosis coronary artery

REACTIONS (11)
  - Anaphylactic shock [Recovering/Resolving]
  - Blood pressure immeasurable [Recovered/Resolved]
  - Sneezing [Recovered/Resolved]
  - Flushing [Recovered/Resolved]
  - Rash papular [Recovered/Resolved]
  - Tremor [Recovered/Resolved]
  - Cyanosis [None]
  - Respiratory rate increased [Not Recovered/Not Resolved]
  - Chest discomfort [None]
  - Tachypnoea [None]
  - Cold sweat [None]

NARRATIVE: CASE EVENT DATE: 20240506
